FAERS Safety Report 8026978-5 (Version None)
Quarter: 2012Q1

REPORT INFORMATION
  Report Type: 
  Country: None (occurrence: None)
  Receive Date: 20120106
  Receipt Date: 20120103
  Transmission Date: 20120608
  Serious: Yes (Life-Threatening, Other)
  Sender: FDA-Public Use
  Company Number: CA-PFIZER INC-2011245204

PATIENT
  Age: 54 Year
  Sex: Female
  Weight: 56 kg

DRUGS (12)
  1. LYRICA [Suspect]
     Indication: NEURALGIA
  2. NEXIUM [Concomitant]
     Dosage: 40 MG, 1X/DAY
  3. SCOPOLAMINE [Concomitant]
     Dosage: 10 MG, 3X/DAY
  4. REACTINE [Concomitant]
     Dosage: 10 MG, 1X/DAY
  5. AMERGE [Concomitant]
     Dosage: 2.5 MG, 1-2 TIMES DAILY
  6. CLONAZEPAM [Concomitant]
     Dosage: 0.5 MG, UNK
  7. LYRICA [Suspect]
     Indication: FIBROMYALGIA
     Dosage: 25 MG, 1X/DAY
     Route: 048
     Dates: start: 20090922, end: 20091011
  8. TYLENOL NO.1 FORTE [Concomitant]
     Dosage: 2-3 PER DAY
  9. MODULON [Concomitant]
     Dosage: 100 MG, 3X/DAY
  10. MELOXICAM [Concomitant]
     Dosage: AVERAGE 7.5 MG DAILY, 3-5 TIMES PER WEEK
  11. TYLENOL W/ CODEINE NO. 3 [Concomitant]
     Dosage: 1-2 PER DAY
  12. GRAVOL TAB [Concomitant]
     Dosage: AS REQUIRED, AVERAGE 25-50 MG DAILY

REACTIONS (5)
  - SUICIDAL IDEATION [None]
  - MOOD SWINGS [None]
  - AGITATION [None]
  - DEPRESSED MOOD [None]
  - INSOMNIA [None]
